FAERS Safety Report 9178292 (Version 1)
Quarter: 2012Q4

REPORT INFORMATION
  Report Type: 
  Country: US (occurrence: US)
  Receive Date: 20121029
  Receipt Date: 20121029
  Transmission Date: 20130627
  Serious: No
  Sender: FDA-Public Use
  Company Number: US-PFIZER INC-2012267344

PATIENT
  Age: 81 Year
  Sex: Male
  Weight: 93.42 kg

DRUGS (3)
  1. VIAGRA [Suspect]
     Indication: ERECTILE DYSFUNCTION
     Dosage: UNK
     Route: 048
     Dates: start: 1987
  2. ACETYLSALICYLIC ACID [Concomitant]
     Dosage: UNK
  3. WARFARIN SODIUM [Concomitant]
     Indication: ANTICOAGULANT THERAPY
     Dosage: 5 mg, daily

REACTIONS (1)
  - Drug ineffective [Unknown]
